FAERS Safety Report 4503162-0 (Version None)
Quarter: 2004Q4

REPORT INFORMATION
  Report Type: 
  Country: None (occurrence: None)
  Receive Date: 20041116
  Receipt Date: 20041116
  Transmission Date: 20050328
  Serious: Yes (Hospitalization)
  Sender: FDA-Public Use
  Company Number: None

PATIENT
  Age: 87 Year
  Sex: Female

DRUGS (2)
  1. ABCIXIMAB (STD DOSE) [Suspect]
     Dosage: STD DOSE
     Dates: start: 20001111
  2. ABCIXIMAB (STD DOSE) [Suspect]
     Dosage: STD DOSE
     Dates: start: 20041111

REACTIONS (3)
  - BLOOD PRESSURE DECREASED [None]
  - RETROPERITONEAL HAEMORRHAGE [None]
  - THROMBOCYTOPENIA [None]
